FAERS Safety Report 7955370 (Version 8)
Quarter: 2015Q3

REPORT INFORMATION
  Report Type: Report from Study
  Country: JP (occurrence: JP)
  Receive Date: 20110523
  Receipt Date: 20150915
  Transmission Date: 20151125
  Serious: Yes (Death, Hospitalization, Disabling, Other)
  Sender: FDA-Public Use
  Company Number: PHHO2010JP19982

PATIENT
  Age: 79 Year
  Sex: Male
  Weight: 49 kg

DRUGS (24)
  1. BAYASPIRIN [Concomitant]
     Active Substance: ASPIRIN
     Indication: PERIPHERAL ARTERIAL OCCLUSIVE DISEASE
     Dosage: 100 MG, QD
     Route: 048
     Dates: start: 20110209
  2. FELBINAC [Concomitant]
     Active Substance: FELBINAC
     Indication: ANKLE FRACTURE
     Dosage: 70 MG, PRN
     Route: 062
     Dates: start: 20101215, end: 20101229
  3. FUROSEMIDE. [Concomitant]
     Active Substance: FUROSEMIDE
     Dosage: 20 MG, QD
     Route: 048
     Dates: start: 20110104, end: 20110111
  4. WARFARIN POTASSIUM [Concomitant]
     Active Substance: WARFARIN POTASSIUM
     Indication: PERIPHERAL ARTERIAL OCCLUSIVE DISEASE
     Dosage: 1.5 MG, QD
     Route: 065
     Dates: start: 19991117, end: 20110208
  5. ARASENA A [Concomitant]
     Active Substance: VIDARABINE
     Indication: PRODUCT USED FOR UNKNOWN INDICATION
     Dosage: UNK
     Route: 062
     Dates: start: 20101201
  6. SIGMART [Concomitant]
     Active Substance: NICORANDIL
     Dosage: 5 MG, BID
     Route: 048
     Dates: start: 20100107, end: 20110506
  7. ALISKIREN [Suspect]
     Active Substance: ALISKIREN
     Indication: CARDIAC FAILURE CHRONIC
     Dosage: 150 MG, QD
     Route: 048
     Dates: start: 20100216, end: 20100308
  8. SENNOSIDE [Concomitant]
     Active Substance: SENNOSIDES
     Dosage: 24 MG, QD
     Route: 048
     Dates: start: 20110111, end: 20110506
  9. SIGMART [Concomitant]
     Active Substance: NICORANDIL
     Indication: ANGINA PECTORIS
     Dosage: 5 MG, TID
     Route: 048
     Dates: start: 20060420
  10. MS REISHIPPU ASTRA [Concomitant]
     Indication: ANKLE FRACTURE
     Dosage: UNK UNK, PRN
     Route: 062
     Dates: start: 20101230, end: 20110111
  11. PIROLACTONE [Concomitant]
     Indication: CARDIAC FAILURE CONGESTIVE
     Dosage: 25 MG, QD
     Route: 048
     Dates: start: 20091106
  12. ALISKIREN [Suspect]
     Active Substance: ALISKIREN
     Dosage: UNK
     Route: 048
     Dates: start: 20100309, end: 20101229
  13. COMPARATOR ENALAPRIL [Suspect]
     Active Substance: ENALAPRIL
     Indication: CARDIAC FAILURE
     Dosage: 10 MG, QD
     Route: 048
     Dates: start: 20091223, end: 20100118
  14. SENNOSIDE [Concomitant]
     Active Substance: SENNOSIDES
     Dosage: 12 MG, QD
     Route: 048
     Dates: start: 20110104, end: 20110111
  15. ACICLOVIR [Concomitant]
     Active Substance: ACYCLOVIR
     Indication: PRODUCT USED FOR UNKNOWN INDICATION
     Dosage: 1250 MG, QD
     Route: 041
     Dates: start: 20101201
  16. COMPARATOR ENALAPRIL [Suspect]
     Active Substance: ENALAPRIL
     Dosage: 20 MG, QD
     Route: 048
     Dates: start: 20100119, end: 20100215
  17. VITAMEDIN CAPSULE [Concomitant]
     Indication: PRODUCT USED FOR UNKNOWN INDICATION
     Dosage: 1 DF, QD
     Route: 041
     Dates: start: 20110105, end: 20110109
  18. ALISKIREN [Suspect]
     Active Substance: ALISKIREN
     Indication: CARDIAC FAILURE
     Dosage: 150 MG, QD
     Route: 048
     Dates: start: 20100216, end: 20100308
  19. SENNOSIDE [Concomitant]
     Active Substance: SENNOSIDES
     Indication: CONSTIPATION
     Dosage: 24 MG, QD
     Route: 048
     Dates: start: 20100730
  20. SENNOSIDE [Concomitant]
     Active Substance: SENNOSIDES
     Dosage: 12 MG, QD
     Route: 048
     Dates: start: 20110102, end: 20110102
  21. SIGMART [Concomitant]
     Active Substance: NICORANDIL
     Dosage: 5 MG, TID
     Route: 048
     Dates: start: 20090709, end: 20110106
  22. FUROSEMIDE. [Concomitant]
     Active Substance: FUROSEMIDE
     Indication: CARDIAC FAILURE CONGESTIVE
     Dosage: 40 MG, QD
     Route: 048
     Dates: start: 20090709
  23. ARTIST [Concomitant]
     Active Substance: CARVEDILOL
     Indication: HYPERTENSION
     Dosage: 5 MG, BID
     Route: 048
     Dates: start: 20090323
  24. ALOSITOL [Concomitant]
     Active Substance: ALLOPURINOL
     Indication: HYPERURICAEMIA
     Dosage: 100 MG, TID
     Route: 065
     Dates: start: 20110330, end: 20110401

REACTIONS (27)
  - Cardiac failure acute [Fatal]
  - Abdominal pain upper [Not Recovered/Not Resolved]
  - Burning sensation [Unknown]
  - Swelling [Unknown]
  - Cholelithiasis [Not Recovered/Not Resolved]
  - Joint swelling [Unknown]
  - Ocular icterus [Unknown]
  - Chest pain [Not Recovered/Not Resolved]
  - Abdominal discomfort [Unknown]
  - Eyelid oedema [Fatal]
  - Abdominal distension [Fatal]
  - Oedema peripheral [Fatal]
  - Abdominal pain [Not Recovered/Not Resolved]
  - Bone atrophy [Unknown]
  - Musculoskeletal pain [Unknown]
  - Fall [Unknown]
  - Prostate cancer [Not Recovered/Not Resolved]
  - Abdominal pain lower [Not Recovered/Not Resolved]
  - Dehydration [Recovered/Resolved]
  - Pancytopenia [Unknown]
  - Pallor [Unknown]
  - Constipation [Not Recovered/Not Resolved]
  - Ankle fracture [Unknown]
  - Hypotension [Unknown]
  - Rotator cuff syndrome [Unknown]
  - Face oedema [Fatal]
  - Metastases to bone marrow [Not Recovered/Not Resolved]

NARRATIVE: CASE EVENT DATE: 20100723
